FAERS Safety Report 9687111 (Version 3)
Quarter: 2014Q2

REPORT INFORMATION
  Report Type: Spontaneous
  Country: US (occurrence: US)
  Receive Date: 20131113
  Receipt Date: 20140411
  Transmission Date: 20141212
  Serious: Yes (Death, Hospitalization)
  Sender: FDA-Public Use
  Company Number: US-B.I. PHARMACEUTICALS,INC./RIDGEFIELD-2013-BI-36638BP

PATIENT
  Sex: Male
  Weight: 70.3 kg

DRUGS (5)
  1. PRADAXA [Suspect]
     Indication: ATRIAL FIBRILLATION
     Dosage: 300 MG
     Route: 065
     Dates: start: 20110719, end: 20111015
  2. PRADAXA [Suspect]
     Indication: ANTICOAGULANT THERAPY
  3. SANCTURA [Concomitant]
     Route: 065
     Dates: start: 2009, end: 2011
  4. REVATIO [Concomitant]
     Route: 065
     Dates: start: 2010, end: 2011
  5. AMLODIPINE [Concomitant]
     Route: 065
     Dates: start: 2008, end: 2011

REACTIONS (1)
  - Cerebral haemorrhage [Fatal]
